FAERS Safety Report 7310110-7 (Version None)
Quarter: 2011Q1

REPORT INFORMATION
  Report Type: 
  Country: None (occurrence: None)
  Receive Date: 20110224
  Receipt Date: 20110217
  Transmission Date: 20110831
  Serious: No
  Sender: FDA-Public Use
  Company Number: US-PFIZER INC-2011035976

PATIENT
  Sex: Male
  Weight: 99.773 kg

DRUGS (3)
  1. ADVIL LIQUI-GELS [Suspect]
     Indication: PYREXIA
     Dosage: 200 MG, 2X/DAY
     Route: 048
     Dates: start: 20110201
  2. ADVIL LIQUI-GELS [Suspect]
     Indication: PAIN
  3. GLYBURIDE [Concomitant]
     Indication: TYPE 2 DIABETES MELLITUS
     Dosage: UNK

REACTIONS (1)
  - DRUG INEFFECTIVE [None]
